FAERS Safety Report 8961814 (Version 1)
Quarter: 2012Q4

REPORT INFORMATION
  Report Type: 
  Country: US (occurrence: US)
  Receive Date: 20121212
  Receipt Date: 20121212
  Transmission Date: 20130627
  Serious: No
  Sender: FDA-Public Use
  Company Number: US-VERTEX PHARMACEUTICALS INC.-2012-025763

PATIENT
  Age: 36 Year
  Sex: Male

DRUGS (5)
  1. INCIVEK [Suspect]
     Indication: HEPATITIS C
     Dosage: UNK
     Route: 048
  2. PEGASYS [Suspect]
     Indication: HEPATITIS C
     Dosage: UNK
  3. RIBAVIRIN [Suspect]
     Indication: HEPATITIS C
     Dosage: UNK
  4. XANAX [Concomitant]
  5. PERCOCET                           /00446701/ [Concomitant]

REACTIONS (2)
  - Parosmia [Not Recovered/Not Resolved]
  - Eye irritation [Not Recovered/Not Resolved]
